FAERS Safety Report 21512863 (Version 3)
Quarter: 2023Q2

REPORT INFORMATION
  Report Type: Spontaneous
  Country: US (occurrence: US)
  Receive Date: 20221027
  Receipt Date: 20230522
  Transmission Date: 20230722
  Serious: Yes (Hospitalization, Other)
  Sender: FDA-Public Use
  Company Number: US-CIPLA LTD.-2022US06226

PATIENT

DRUGS (25)
  1. BLEOMYCIN SULFATE [Suspect]
     Active Substance: BLEOMYCIN SULFATE
     Indication: Small cell carcinoma
     Dosage: 15 UNITS/M^2, CYCLICAL
     Route: 065
  2. BLEOMYCIN SULFATE [Suspect]
     Active Substance: BLEOMYCIN SULFATE
     Indication: Ovarian cancer stage III
     Dosage: UNK, CYCLE 2 REDUCED BY 5 %
     Route: 065
  3. BLEOMYCIN SULFATE [Suspect]
     Active Substance: BLEOMYCIN SULFATE
     Indication: Hypercalcaemia of malignancy
     Dosage: CYCLE 3 DOSE REDUCED TO 7.5 UNITS/M^2
     Route: 065
  4. BLEOMYCIN SULFATE [Suspect]
     Active Substance: BLEOMYCIN SULFATE
     Indication: Metastases to lymph nodes
  5. CYCLOPHOSPHAMIDE [Suspect]
     Active Substance: CYCLOPHOSPHAMIDE
     Indication: Small cell carcinoma
     Dosage: 1000 MG/M ^2, CYCLICAL
     Route: 065
  6. CYCLOPHOSPHAMIDE [Suspect]
     Active Substance: CYCLOPHOSPHAMIDE
     Indication: Ovarian cancer stage III
     Dosage: UNK, CYCLE 2 REDUCED BY 5 %
     Route: 065
  7. CYCLOPHOSPHAMIDE [Suspect]
     Active Substance: CYCLOPHOSPHAMIDE
     Indication: Hypercalcaemia of malignancy
  8. CYCLOPHOSPHAMIDE [Suspect]
     Active Substance: CYCLOPHOSPHAMIDE
     Indication: Metastases to lymph nodes
  9. VINCRISTINE [Suspect]
     Active Substance: VINCRISTINE
     Indication: Small cell carcinoma
     Dosage: 6 MG/M^2, CYCLICAL
     Route: 065
  10. VINCRISTINE [Suspect]
     Active Substance: VINCRISTINE
     Indication: Ovarian cancer stage III
     Dosage: UNK, DOSE REDUCED BY 5 %
     Route: 065
  11. VINCRISTINE [Suspect]
     Active Substance: VINCRISTINE
     Indication: Hypercalcaemia of malignancy
  12. VINCRISTINE [Suspect]
     Active Substance: VINCRISTINE
     Indication: Metastases to lymph nodes
  13. CISPLATIN [Suspect]
     Active Substance: CISPLATIN
     Indication: Small cell carcinoma
     Dosage: 90 MG/M^2, CYCLICAL
     Route: 065
  14. CISPLATIN [Suspect]
     Active Substance: CISPLATIN
     Indication: Ovarian cancer stage III
     Dosage: UNK, CYCLE 2 REDUCED BY 5 %
     Route: 065
  15. CISPLATIN [Suspect]
     Active Substance: CISPLATIN
     Indication: Hypercalcaemia of malignancy
     Dosage: CYCLE 4 REDUCED 25 % (TO 67.5 MG/M2)
     Route: 065
  16. CISPLATIN [Suspect]
     Active Substance: CISPLATIN
     Indication: Metastases to lymph nodes
  17. DOXORUBICIN [Suspect]
     Active Substance: DOXORUBICIN
     Indication: Small cell carcinoma
     Dosage: 45 MG/M^2, CYCLICAL
     Route: 065
  18. DOXORUBICIN [Suspect]
     Active Substance: DOXORUBICIN
     Indication: Ovarian cancer stage III
     Dosage: UNK, CYCLE 2 REDUCED BY 5 %
     Route: 065
  19. DOXORUBICIN [Suspect]
     Active Substance: DOXORUBICIN
     Indication: Hypercalcaemia of malignancy
  20. DOXORUBICIN [Suspect]
     Active Substance: DOXORUBICIN
     Indication: Metastases to lymph nodes
  21. ETOPOSIDE [Suspect]
     Active Substance: ETOPOSIDE
     Indication: Small cell carcinoma
     Dosage: 200 MG/M^2, CYCLICAL
     Route: 065
  22. ETOPOSIDE [Suspect]
     Active Substance: ETOPOSIDE
     Indication: Ovarian cancer stage III
     Dosage: UNK, CYCLE 2 REDUCED BY 5 %
     Route: 065
  23. ETOPOSIDE [Suspect]
     Active Substance: ETOPOSIDE
     Indication: Hypercalcaemia of malignancy
     Dosage: CYCLE 4 REDUCED 50 % (TO 100 MG/M2)
     Route: 065
  24. ETOPOSIDE [Suspect]
     Active Substance: ETOPOSIDE
     Indication: Metastases to lymph nodes
  25. PEGFILGRASTIM [Concomitant]
     Active Substance: PEGFILGRASTIM
     Indication: Supportive care
     Dosage: UNK
     Route: 065

REACTIONS (3)
  - Febrile neutropenia [Unknown]
  - Neutropenia [Unknown]
  - Lung diffusion test decreased [Unknown]
